FAERS Safety Report 8461950-2 (Version None)
Quarter: 2012Q2

REPORT INFORMATION
  Report Type: 
  Country: None (occurrence: None)
  Receive Date: 20120625
  Receipt Date: 20120613
  Transmission Date: 20120825
  Serious: Yes (Hospitalization)
  Sender: FDA-Public Use
  Company Number: DE-ELI_LILLY_AND_COMPANY-DE201106006926

PATIENT
  Age: 63 Year
  Sex: Female
  Weight: 57 kg

DRUGS (17)
  1. RADIATION [Suspect]
     Indication: NON-SMALL CELL LUNG CANCER
     Dosage: 2GY FIVE TIMES A WEEK
     Dates: start: 20110502, end: 20110620
  2. ASPIRIN [Concomitant]
     Indication: PERIPHERAL VASCULAR DISORDER
     Dosage: UNK
     Dates: start: 20080101
  3. ALENDRON [Concomitant]
     Indication: OSTEOPOROSIS
     Dosage: UNK
     Dates: start: 20101001
  4. LOSARTAN POTASSIUM [Concomitant]
     Indication: HYPERTENSION
     Dosage: UNK
     Dates: start: 20110101
  5. PARACODIN BITARTRATE TAB [Concomitant]
     Indication: COUGH
     Dosage: UNK
     Dates: start: 20110516
  6. VITAMIN B-12 [Concomitant]
     Indication: PROPHYLAXIS
     Dosage: UNK
     Dates: start: 20110419
  7. NOVALGINE [Concomitant]
     Indication: PAIN
     Dosage: UNK
     Dates: start: 20110509
  8. ONDANSETRON [Concomitant]
     Indication: ANTIEMETIC SUPPORTIVE CARE
     Dosage: UNK
     Dates: start: 20110505
  9. FOLIC ACID [Concomitant]
     Indication: PROPHYLAXIS
     Dosage: UNK
     Dates: start: 20110419
  10. DEXAMETHASONE [Concomitant]
     Indication: PROPHYLAXIS
     Dosage: UNK
     Dates: start: 20110501
  11. LAXOBERAL [Concomitant]
     Indication: CONSTIPATION
     Dosage: UNK
     Dates: start: 20110618
  12. INSULIN [Concomitant]
     Indication: DIABETES MELLITUS
     Dosage: UNK
     Dates: start: 19980101
  13. CISPLATIN [Suspect]
     Indication: NON-SMALL CELL LUNG CANCER
     Dosage: 75 MG/M2 (125.5 MG), Q3W
     Route: 042
     Dates: start: 20110502, end: 20110614
  14. OMEPRAZOLE [Concomitant]
     Indication: PROPHYLAXIS
     Dosage: UNK
     Dates: start: 20110512
  15. TEPILTA [Concomitant]
     Indication: DYSPHAGIA
     Dosage: UNK
     Dates: start: 20110518
  16. PEMETREXED [Suspect]
     Indication: NON-SMALL CELL LUNG CANCER
     Dosage: 500 MG/M2 (830 MG), Q3W
     Route: 042
     Dates: start: 20110502, end: 20110614
  17. LEVOTHYROXINE SODIUM [Concomitant]
     Indication: THYROIDECTOMY
     Dosage: UNK
     Dates: start: 19990101

REACTIONS (1)
  - RADIATION OESOPHAGITIS [None]
